FAERS Safety Report 5127379-X (Version None)
Quarter: 2006Q4

REPORT INFORMATION
  Report Type: 
  Country: None (occurrence: None)
  Receive Date: 20061010
  Receipt Date: 20060926
  Transmission Date: 20070319
  Serious: Yes (Other)
  Sender: FDA-Public Use
  Company Number: GXKR2006ES06071

PATIENT
  Age: 30 Year
  Sex: Female

DRUGS (1)
  1. THIAMAZOLE (NGX)(THIAMAZOLE) [Suspect]
     Indication: BASEDOW'S DISEASE
     Dosage: 30 MG/DAY

REACTIONS (4)
  - ARTHRITIS [None]
  - MUSCULOSKELETAL STIFFNESS [None]
  - NEUTROPENIA [None]
  - PYREXIA [None]
